FAERS Safety Report 6891790-7 (Version None)
Quarter: 2010Q3

REPORT INFORMATION
  Report Type: 
  Country: None (occurrence: None)
  Receive Date: 20100731
  Receipt Date: 20071029
  Transmission Date: 20110219
  Serious: Yes (Hospitalization, Other)
  Sender: FDA-Public Use
  Company Number: US-PFIZER INC-2007091131

PATIENT
  Sex: Female

DRUGS (2)
  1. FLAGYL [Suspect]
     Indication: CROHN'S DISEASE
     Dates: end: 20070901
  2. REMICADE [Concomitant]

REACTIONS (1)
  - NEUROPATHY PERIPHERAL [None]
